FAERS Safety Report 18769160 (Version 1)
Quarter: 2021Q1

REPORT INFORMATION
  Report Type: Spontaneous
  Country: US (occurrence: US)
  Receive Date: 20210121
  Receipt Date: 20210121
  Transmission Date: 20210419
  Serious: No
  Sender: FDA-Public Use
  Company Number: US-PFIZER INC-2021034270

PATIENT
  Age: 54 Year
  Sex: Female

DRUGS (13)
  1. IBUPROFEN. [Suspect]
     Active Substance: IBUPROFEN
     Dosage: UNK
  2. DAPSONE. [Suspect]
     Active Substance: DAPSONE
  3. TRIAMCINOLONE [Suspect]
     Active Substance: TRIAMCINOLONE
  4. CELECOXIB. [Suspect]
     Active Substance: CELECOXIB
     Dosage: UNK
  5. AZTREONAM. [Suspect]
     Active Substance: AZTREONAM
  6. LEVOFLOXACIN. [Suspect]
     Active Substance: LEVOFLOXACIN
     Dosage: UNK
  7. METOPROLOL TARTRATE. [Suspect]
     Active Substance: METOPROLOL TARTRATE
     Dosage: UNK
  8. DIAZEPAM. [Suspect]
     Active Substance: DIAZEPAM
     Dosage: UNK
  9. DOXYCYCLINE HYCLATE. [Suspect]
     Active Substance: DOXYCYCLINE HYCLATE
     Dosage: UNK
  10. CARVEDILOL. [Suspect]
     Active Substance: CARVEDILOL
  11. LISINOPRIL. [Suspect]
     Active Substance: LISINOPRIL
  12. CEPHALOSPORIN NOS [Suspect]
     Active Substance: UNSPECIFIED INGREDIENT
  13. OMEPRAZOLE. [Suspect]
     Active Substance: OMEPRAZOLE

REACTIONS (2)
  - Drug hypersensitivity [Unknown]
  - Herpes zoster [Unknown]

NARRATIVE: CASE EVENT DATE: 2007
